FAERS Safety Report 19313222 (Version 1)
Quarter: 2021Q2

REPORT INFORMATION
  Report Type: Spontaneous
  Country: NL (occurrence: NL)
  Receive Date: 20210527
  Receipt Date: 20210527
  Transmission Date: 20210717
  Serious: Yes (Other)
  Sender: FDA-Public Use
  Company Number: NL-ORGANON-O2105NLD001571

PATIENT
  Sex: Female

DRUGS (8)
  1. UTROGESTAN [Suspect]
     Active Substance: PROGESTERONE
     Indication: IN VITRO FERTILISATION
     Dosage: LONG PROTOCOL
  2. PREGNYL [Suspect]
     Active Substance: CHORIOGONADOTROPIN ALFA
     Dosage: SHORT PROTOCOL
  3. GONAL?F [Suspect]
     Active Substance: FOLLITROPIN
     Dosage: 225 UNITS UNSPECIFIED, SHORT PROTOCOL
  4. GONAL?F [Suspect]
     Active Substance: FOLLITROPIN
     Indication: IN VITRO FERTILISATION
     Dosage: 300 UNITS UNSPECIFIED, SHORT PROTOCOL
  5. PREGNYL [Suspect]
     Active Substance: CHORIOGONADOTROPIN ALFA
     Indication: IN VITRO FERTILISATION
     Dosage: LONG PROTOCOL
  6. GONAL?F [Suspect]
     Active Substance: FOLLITROPIN
     Dosage: 100 UNITS UNSPECIFIED, LONG PROTOCOL
  7. DECAPEPTYL [GONADORELIN] [Suspect]
     Active Substance: GONADORELIN
     Indication: IN VITRO FERTILISATION
     Dosage: UNK
  8. UTROGESTAN [Suspect]
     Active Substance: PROGESTERONE
     Dosage: SHORT PROTOCOL

REACTIONS (2)
  - Abortion spontaneous [Recovered/Resolved]
  - Ovarian hyperstimulation syndrome [Unknown]
